FAERS Safety Report 14307725 (Version 1)
Quarter: 2017Q4

REPORT INFORMATION
  Report Type: Spontaneous
  Country: US (occurrence: US)
  Receive Date: 20171219
  Receipt Date: 20171219
  Transmission Date: 20180321
  Serious: No
  Sender: FDA-Public Use
  Company Number: None

PATIENT
  Age: 71 Year
  Sex: Male
  Weight: 86 kg

DRUGS (1)
  1. EXENATIDE. [Suspect]
     Active Substance: EXENATIDE
     Indication: DIABETES MELLITUS
     Route: 058
     Dates: start: 20171110, end: 20171130

REACTIONS (6)
  - Urticaria [None]
  - Skin mass [None]
  - Injection site nodule [None]
  - Injection site pruritus [None]
  - Pruritus [None]
  - Injection site reaction [None]

NARRATIVE: CASE EVENT DATE: 20171117
